FAERS Safety Report 4855637-2 (Version None)
Quarter: 2005Q4

REPORT INFORMATION
  Report Type: 
  Country: None (occurrence: None)
  Receive Date: 20051216
  Receipt Date: 20051207
  Transmission Date: 20060501
  Serious: Yes (Disabling)
  Sender: FDA-Public Use
  Company Number: 2005GB02391

PATIENT
  Age: 34 Year
  Sex: Male
  Weight: 56 kg

DRUGS (2)
  1. QUETIAPINE FUMARATE [Suspect]
     Indication: MANIA
     Dosage: ABOVE 200 MG
     Route: 048
     Dates: start: 20050920
  2. EPILIM [Concomitant]
     Dosage: 1 - 2 DOSES
     Route: 065
     Dates: start: 20050801

REACTIONS (2)
  - EJACULATION DISORDER [None]
  - PELVIC DISCOMFORT [None]
